FAERS Safety Report 21923566 (Version 1)
Quarter: 2023Q1

REPORT INFORMATION
  Report Type: Spontaneous
  Country: US (occurrence: US)
  Receive Date: 20230130
  Receipt Date: 20230130
  Transmission Date: 20230418
  Serious: No
  Sender: FDA-Public Use
  Company Number: US-RICONPHARMA, LLC-2022RIC000035

PATIENT

DRUGS (1)
  1. ISOSORBIDE DINITRATE AND HYDRALAZINE HYDROCHLORIDE [Suspect]
     Active Substance: HYDRALAZINE HYDROCHLORIDE\ISOSORBIDE DINITRATE
     Indication: Blood pressure increased
     Dosage: 20 MG/37.5 MG
     Route: 065
     Dates: start: 20221203, end: 20221204

REACTIONS (3)
  - Discomfort [Unknown]
  - Product taste abnormal [Unknown]
  - Product use in unapproved indication [Unknown]
